FAERS Safety Report 15306631 (Version 1)
Quarter: 2018Q3

REPORT INFORMATION
  Report Type: Spontaneous
  Country: US (occurrence: US)
  Receive Date: 20180810
  Receipt Date: 20180810
  Transmission Date: 20181010
  Serious: Yes (Life-Threatening, Disabling)
  Sender: FDA-Public Use
  Company Number: None

PATIENT
  Age: 54 Year
  Sex: Female
  Weight: 87.75 kg

DRUGS (9)
  1. PAXIL [Concomitant]
     Active Substance: PAROXETINE HYDROCHLORIDE
  2. VITA D3 [Concomitant]
  3. LYRICA [Suspect]
     Active Substance: PREGABALIN
     Indication: SCIATICA
     Dosage: ?          QUANTITY:1 CAPSULE(S);?
     Route: 048
     Dates: start: 20180719, end: 20180731
  4. COCONUT OIL [Concomitant]
     Active Substance: COCONUT OIL
  5. VITAMIN C [Concomitant]
     Active Substance: ASCORBIC ACID
  6. GLUCOSAMINE [Concomitant]
     Active Substance: GLUCOSAMINE
  7. CANE [Concomitant]
  8. FISH OIL [Concomitant]
     Active Substance: FISH OIL
  9. LYRICA [Suspect]
     Active Substance: PREGABALIN
     Indication: INTERVERTEBRAL DISC PROTRUSION
     Dosage: ?          QUANTITY:1 CAPSULE(S);?
     Route: 048
     Dates: start: 20180719, end: 20180731

REACTIONS (11)
  - Dizziness [None]
  - Dyspnoea [None]
  - Nausea [None]
  - Confusional state [None]
  - Tremor [None]
  - Hot flush [None]
  - Insomnia [None]
  - Impaired driving ability [None]
  - Dysarthria [None]
  - Hyperhidrosis [None]
  - Coordination abnormal [None]

NARRATIVE: CASE EVENT DATE: 20180731
